FAERS Safety Report 4562553-2 (Version None)
Quarter: 2005Q1

REPORT INFORMATION
  Report Type: 
  Country: None (occurrence: None)
  Receive Date: 20050127
  Receipt Date: 20050119
  Transmission Date: 20050727
  Serious: Yes (Hospitalization)
  Sender: FDA-Public Use
  Company Number: GR-MERCK-0501USA03169

PATIENT
  Age: 62 Year
  Sex: Female

DRUGS (4)
  1. HYDRODIURIL [Suspect]
     Route: 048
  2. ATENOLOL [Concomitant]
     Route: 065
  3. ASPIRIN [Concomitant]
     Route: 065
  4. CAPTOPRIL [Concomitant]
     Route: 065

REACTIONS (3)
  - DYSPNOEA [None]
  - LARYNGEAL OEDEMA [None]
  - TONGUE OEDEMA [None]
